FAERS Safety Report 9228455 (Version 1)
Quarter: 2013Q1

REPORT INFORMATION
  Report Type: Spontaneous
  Country: US (occurrence: None)
  Receive Date: 20121024
  Receipt Date: 20121024
  Transmission Date: 20140127
  Serious: Yes (Hospitalization)
  Sender: FDA-Public Use
  Company Number: DSA_55260_2012

PATIENT
  Age: 51 Year
  Sex: Female

DRUGS (16)
  1. WELLBUTRIN [Suspect]
     Indication: DEPRESSION
     Dosage: (DF)
  2. WELLBUTRIN [Suspect]
     Indication: ANXIETY DISORDER
     Dosage: (DF)
  3. WELLBUTRIN [Suspect]
     Indication: PSYCHOMOTOR HYPERACTIVITY
     Dosage: (DF)
  4. PAXIL [Suspect]
     Indication: DEPRESSION
     Dosage: (DF)
  5. PAXIL [Suspect]
     Indication: ANXIETY DISORDER
     Dosage: (DF)
  6. PAXIL [Suspect]
     Indication: PSYCHOMOTOR HYPERACTIVITY
     Dosage: (DF)
  7. UNSPECIFIED MEDICATION [Suspect]
     Indication: DEPRESSION
     Dosage: (DF)
  8. UNSPECIFIED MEDICATION [Suspect]
     Indication: ANXIETY DISORDER
     Dosage: (DF)
  9. UNSPECIFIED MEDICATION [Suspect]
     Indication: PSYCHOMOTOR HYPERACTIVITY
     Dosage: (DF)
  10. CRESTOR [Concomitant]
  11. TRICOR [Concomitant]
  12. PLAVIX [Concomitant]
  13. AMLODIPINE [Concomitant]
  14. CLONAZEPAM [Concomitant]
  15. ASPIRIN [Concomitant]
  16. ADDERALL [Concomitant]

REACTIONS (3)
  - Suicide attempt [None]
  - Depression [None]
  - Overdose [None]
